FAERS Safety Report 10745077 (Version 1)
Quarter: 2015Q1

REPORT INFORMATION
  Report Type: Report from Study
  Country: US (occurrence: US)
  Receive Date: 20150128
  Receipt Date: 20150128
  Transmission Date: 20150721
  Serious: Yes (Hospitalization, Other)
  Sender: FDA-Public Use
  Company Number: US-ABBVIE-15K-163-1335623-00

PATIENT
  Age: 69 Year
  Sex: Female
  Weight: 72.64 kg

DRUGS (1)
  1. HUMIRA [Suspect]
     Active Substance: ADALIMUMAB
     Indication: CROHN^S DISEASE
     Route: 058
     Dates: start: 2008, end: 201406

REACTIONS (8)
  - Intestinal obstruction [Recovering/Resolving]
  - Pneumonia [Recovered/Resolved]
  - Appendicectomy [Unknown]
  - Abdominal pain [Recovered/Resolved]
  - Lower gastrointestinal haemorrhage [Unknown]
  - Vomiting [Recovered/Resolved]
  - Drug ineffective [Not Recovered/Not Resolved]
  - Intestinal stenosis [Unknown]

NARRATIVE: CASE EVENT DATE: 2014
